FAERS Safety Report 9336021 (Version 2)
Quarter: 2013Q3

REPORT INFORMATION
  Report Type: Report from Study
  Country: ES (occurrence: ES)
  Receive Date: 20130607
  Receipt Date: 20130709
  Transmission Date: 20140515
  Serious: Yes (Hospitalization, Other)
  Sender: FDA-Public Use
  Company Number: ES-BIOGENIDEC-2013BI049706

PATIENT
  Age: 39 Year
  Sex: Male

DRUGS (11)
  1. TYSABRI [Suspect]
     Indication: RELAPSING-REMITTING MULTIPLE SCLEROSIS
     Dates: start: 20100517, end: 20130528
  2. TYSABRI [Suspect]
     Indication: RELAPSING-REMITTING MULTIPLE SCLEROSIS
  3. INSULIN PUMP [Concomitant]
     Indication: DIABETES MELLITUS
  4. NOVORAPID INSULIN [Concomitant]
     Route: 058
  5. LANTUS [Concomitant]
     Route: 058
  6. TAMSULOSIN [Concomitant]
     Route: 048
  7. OMEPRAZOLE [Concomitant]
     Route: 048
  8. VENLAFAXINE [Concomitant]
     Route: 048
  9. MIRTAZAPINE [Concomitant]
     Route: 048
  10. ALPRAZOLAM [Concomitant]
     Route: 048
  11. AMITRIPTYLINE [Concomitant]
     Route: 048

REACTIONS (1)
  - Lung abscess [Recovered/Resolved]
